FAERS Safety Report 18271732 (Version 1)
Quarter: 2020Q3

REPORT INFORMATION
  Report Type: Spontaneous
  Country: US (occurrence: US)
  Receive Date: 20200915
  Receipt Date: 20200915
  Transmission Date: 20201103
  Serious: No
  Sender: FDA-Public Use
  Company Number: None

PATIENT
  Age: 68 Year
  Sex: Female
  Weight: 58.5 kg

DRUGS (1)
  1. INSTANT GEL HAND SANITIZER [Suspect]
     Active Substance: ALCOHOL
     Indication: COVID-19 PROPHYLAXIS
     Dosage: ?          QUANTITY:2 GALLONS;?
     Route: 061
     Dates: start: 20200907, end: 20200907

REACTIONS (3)
  - Suspected product quality issue [None]
  - Application site pain [None]
  - Product odour abnormal [None]

NARRATIVE: CASE EVENT DATE: 20200907
